FAERS Safety Report 22061119 (Version 1)
Quarter: 2023Q1

REPORT INFORMATION
  Report Type: Spontaneous
  Country: SE (occurrence: SE)
  Receive Date: 20230303
  Receipt Date: 20230303
  Transmission Date: 20230418
  Serious: Yes (Other)
  Sender: FDA-Public Use
  Company Number: None

PATIENT
  Age: 24 Year
  Sex: Female

DRUGS (12)
  1. VENLAFAXINE [Suspect]
     Active Substance: VENLAFAXINE HYDROCHLORIDE
     Indication: Depression
     Dosage: UPP TILL 112,5 MG.
     Route: 048
     Dates: start: 20221201, end: 20221215
  2. VENLAFAXINE [Suspect]
     Active Substance: VENLAFAXINE HYDROCHLORIDE
     Dosage: UPP TILL 112,5 MG.
     Route: 048
     Dates: start: 20221201, end: 20221215
  3. EBASTINE [Concomitant]
     Active Substance: EBASTINE
     Indication: Product used for unknown indication
     Dosage: 1 TABLET IF NECESSARY, MAXIMUM 2 TABLETS PER DAY. KESTINE 10 MG FILM-COATED TABLET
     Route: 065
     Dates: start: 20220604
  4. LOCOID [Concomitant]
     Active Substance: HYDROCORTISONE BUTYRATE
     Indication: Product used for unknown indication
     Dosage: MORNING AND EVENING FOR 2 WEEKS. EVERY NIGHT FOR 2 WEEKS AND EVERY OTHER TIME
     Route: 065
     Dates: start: 20221102
  5. MIRENA [Concomitant]
     Active Substance: LEVONORGESTREL
     Indication: Product used for unknown indication
     Dosage: 20 MCG/24 H INTRAUTERINE POST
     Route: 015
     Dates: start: 20220801
  6. MOMETASONE [Concomitant]
     Active Substance: MOMETASONE
     Indication: Product used for unknown indication
     Dosage: 50 MICROGRAMS/DOSE NASAL SPRAY, SUSPENSION 1-2 DOSES 1 TIME DAILY IN EACH NOSTRIL.
     Route: 045
     Dates: start: 20211008
  7. SUMATRIPTAN AUROBINDO [Concomitant]
     Indication: Product used for unknown indication
     Dosage: 1 TABLET IF NECESSARY, MAXIMUM 2 TABLETS PER DAY. 50 MG TABLET
     Route: 065
     Dates: start: 20200911
  8. NAPROXEN [Concomitant]
     Active Substance: NAPROXEN
     Indication: Product used for unknown indication
     Dosage: 3 TABLETS IF NECESSARY
     Route: 065
     Dates: start: 20200911
  9. ACETAMINOPHEN [Concomitant]
     Active Substance: ACETAMINOPHEN
     Indication: Product used for unknown indication
     Dosage: 1-2 TABLETS 4 TIMES DAILY.
     Route: 065
     Dates: start: 20190313
  10. ATARAX [Concomitant]
     Active Substance: HYDROXYZINE HYDROCHLORIDE
     Indication: Product used for unknown indication
     Route: 065
     Dates: start: 20220905
  11. PROMETHAZINE HYDROCHLORIDE\THIOUREA [Concomitant]
     Active Substance: PROMETHAZINE HYDROCHLORIDE\THIOUREA
     Indication: Product used for unknown indication
     Dosage: 1 TABLET IF NECESSARY, MAXIMUM 3 TABLETS PER DAY.
     Route: 065
     Dates: start: 20221109
  12. GESTRINA [Concomitant]
     Indication: Product used for unknown indication
     Route: 065
     Dates: start: 20190408

REACTIONS (3)
  - Mouth swelling [Recovered/Resolved]
  - Oral mucosal blistering [Recovered/Resolved]
  - Paraesthesia oral [Unknown]

NARRATIVE: CASE EVENT DATE: 20220101
